FAERS Safety Report 6278180-5 (Version None)
Quarter: 2009Q3

REPORT INFORMATION
  Report Type: 
  Country: None (occurrence: None)
  Receive Date: 20090720
  Receipt Date: 20090709
  Transmission Date: 20100115
  Serious: Yes (Life-Threatening, Hospitalization, Other)
  Sender: FDA-Public Use
  Company Number: ADR5882009(ARROW LOG NO. 2008AG1918

PATIENT
  Age: 60 Year
  Sex: Female

DRUGS (2)
  1. SIMVASTATIN [Suspect]
     Indication: DYSLIPIDAEMIA
     Dosage: 40MG ONCE DAILY ORAL
     Route: 048
     Dates: start: 20070101
  2. GABAPENTIN [Concomitant]

REACTIONS (2)
  - DEHYDRATION [None]
  - RHABDOMYOLYSIS [None]
